FAERS Safety Report 17693700 (Version 2)
Quarter: 2020Q2

REPORT INFORMATION
  Report Type: Report from Study
  Country: None (occurrence: US)
  Receive Date: 20200422
  Receipt Date: 20200519
  Transmission Date: 20200714
  Serious: No
  Sender: FDA-Public Use
  Company Number: US-BIOVITRUM-2020US1460

PATIENT
  Age: 62 Year
  Sex: Female

DRUGS (1)
  1. KINERET [Suspect]
     Active Substance: ANAKINRA
     Indication: STILL^S DISEASE
     Route: 058
     Dates: start: 20191206

REACTIONS (4)
  - Pain in jaw [Unknown]
  - Pruritus [Unknown]
  - Off label use [Not Recovered/Not Resolved]
  - Abscess jaw [Unknown]

NARRATIVE: CASE EVENT DATE: 20191206
